FAERS Safety Report 13516384 (Version 1)
Quarter: 2017Q2

REPORT INFORMATION
  Report Type: Report from Study
  Country: None (occurrence: FR)
  Receive Date: 20170505
  Receipt Date: 20170505
  Transmission Date: 20170830
  Serious: Yes (Hospitalization)
  Sender: FDA-Public Use
  Company Number: FR-ABBVIE-17P-056-1940797-00

PATIENT
  Sex: Female

DRUGS (2)
  1. DUODOPA [Suspect]
     Active Substance: CARBIDOPA\LEVODOPA
     Indication: PARKINSON^S DISEASE
     Route: 050
     Dates: start: 20150821, end: 201509
  2. DUODOPA [Suspect]
     Active Substance: CARBIDOPA\LEVODOPA
     Dosage: MD 10ML; CFRD 3.4ML/H: 07 TO 12:00PM; CFRN 4.4ML/H: 12 TO 07:00AM. BOLUS1.5ML.
     Route: 050
     Dates: start: 201607

REACTIONS (7)
  - Sleep disorder [Unknown]
  - Stoma site extravasation [Unknown]
  - Chills [Unknown]
  - Stoma site inflammation [Unknown]
  - Stoma site induration [Unknown]
  - Stoma site discharge [Not Recovered/Not Resolved]
  - Muscle spasms [Unknown]

NARRATIVE: CASE EVENT DATE: 20170404
